FAERS Safety Report 12226976 (Version 2)
Quarter: 2016Q2

REPORT INFORMATION
  Report Type: Spontaneous
  Country: IT (occurrence: IT)
  Receive Date: 20160331
  Receipt Date: 20160429
  Transmission Date: 20160815
  Serious: Yes (Other)
  Sender: FDA-Public Use
  Company Number: IT-TEVA-647678ACC

PATIENT
  Age: 65 Year
  Sex: Male

DRUGS (5)
  1. ATENOLOL/HYDROCHLOROTHIAZIDE [Suspect]
     Active Substance: ATENOLOL\HYDROCHLOROTHIAZIDE
     Indication: HYPERTENSION
     Dosage: 1 DOSAGE FORMS DAILY; 1 DF DAILY
     Route: 048
     Dates: start: 20160101, end: 20160221
  2. PAROXETINE. [Concomitant]
     Active Substance: PAROXETINE
     Indication: PRODUCT USED FOR UNKNOWN INDICATION
     Dosage: 20 MG
     Route: 048
  3. CARDURA [Concomitant]
     Active Substance: DOXAZOSIN MESYLATE
     Indication: PRODUCT USED FOR UNKNOWN INDICATION
     Route: 048
  4. TRIATEC - 10 MG COMPRESSE [Concomitant]
     Indication: PRODUCT USED FOR UNKNOWN INDICATION
     Route: 048
  5. AMLODIPINE [Concomitant]
     Active Substance: AMLODIPINE BESYLATE
     Indication: PRODUCT USED FOR UNKNOWN INDICATION
     Dosage: 5 MG
     Route: 048

REACTIONS (2)
  - Hypokalaemia [Recovering/Resolving]
  - Iatrogenic injury [None]

NARRATIVE: CASE EVENT DATE: 20160221
